FAERS Safety Report 9512797 (Version 2)
Quarter: 2013Q4

REPORT INFORMATION
  Report Type: Spontaneous
  Country: AU (occurrence: AU)
  Receive Date: 20130910
  Receipt Date: 20131014
  Transmission Date: 20140711
  Serious: Yes (Disabling)
  Sender: FDA-Public Use
  Company Number: AU-B.I. PHARMACEUTICALS,INC./RIDGEFIELD-2013-BI-27429AU

PATIENT
  Age: 82 Year
  Sex: Male
  Weight: 78 kg

DRUGS (7)
  1. PRADAXA [Suspect]
     Indication: ATRIAL FIBRILLATION
     Dosage: 220 MG
     Dates: start: 20111013
  2. DIGOXIN [Concomitant]
     Dosage: 62.5 MCG
     Route: 048
  3. KARVEA [Concomitant]
     Dosage: 150 MG
  4. ZOCOR [Concomitant]
     Dosage: 20 NR
  5. SOMAC [Concomitant]
  6. SPIRIVA [Concomitant]
  7. SERETIDE [Concomitant]

REACTIONS (2)
  - Blindness unilateral [Unknown]
  - Retinal artery occlusion [Recovered/Resolved with Sequelae]
